FAERS Safety Report 6946101-5 (Version None)
Quarter: 2010Q3

REPORT INFORMATION
  Report Type: 
  Country: None (occurrence: None)
  Receive Date: 20100827
  Receipt Date: 20100819
  Transmission Date: 20110219
  Serious: Yes (Other)
  Sender: FDA-Public Use
  Company Number: US-ABBOTT-10P-163-0665618-00

PATIENT
  Sex: Female

DRUGS (4)
  1. DEPAKOTE [Suspect]
     Indication: COMPLEX PARTIAL SEIZURES
     Dates: start: 20060101, end: 20060101
  2. STRATTERA [Concomitant]
     Indication: ATTENTION DEFICIT/HYPERACTIVITY DISORDER
  3. OXYCONTIN [Concomitant]
     Indication: PAIN
  4. XANAX [Concomitant]
     Indication: ANXIETY

REACTIONS (9)
  - AMNESIA [None]
  - FATIGUE [None]
  - FLASHBACK [None]
  - HYPOAESTHESIA [None]
  - INCREASED APPETITE [None]
  - LETHARGY [None]
  - LOCAL SWELLING [None]
  - PARAESTHESIA [None]
  - VICTIM OF SEXUAL ABUSE [None]
